FAERS Safety Report 11128439 (Version 3)
Quarter: 2015Q3

REPORT INFORMATION
  Report Type: Spontaneous
  Country: HU (occurrence: None)
  Receive Date: 20150519
  Receipt Date: 20150708
  Transmission Date: 20151125
  Serious: Yes (Life-Threatening, Hospitalization)
  Sender: FDA-Public Use
  Company Number: 2015FE01543

PATIENT
  Age: 64 Year
  Sex: Female
  Weight: 63 kg

DRUGS (6)
  1. L-THYROXIN (LEVOTHYROXINE SODIUM) [Concomitant]
  2. PICOPREP [Suspect]
     Active Substance: CITRIC ACID MONOHYDRATE\MAGNESIUM OXIDE\SODIUM PICOSULFATE
     Indication: BOWEL PREPARATION
     Route: 048
     Dates: start: 20140227, end: 20140227
  3. ADEXOR (TRIMETAZIDINE HYDROCHLORIDE) [Concomitant]
  4. DICETEL (PINAVERIUM BROMIDE) [Concomitant]
  5. PANTOPRAZOL (PANTOPRAZOLE SODIUM SESQUIHYDRATE) [Concomitant]
     Active Substance: PANTOPRAZOLE SODIUM
  6. MEZYM FORTE (PANCREATIN) [Concomitant]

REACTIONS (16)
  - Diarrhoea [None]
  - Abdominal pain [None]
  - Nausea [None]
  - Somnolence [None]
  - Amnesia [None]
  - Hypokalaemia [None]
  - Coma [None]
  - Dehydration [None]
  - Hypercalcaemia [None]
  - Hyposthenuria [None]
  - Generalised tonic-clonic seizure [None]
  - Dyspnoea [None]
  - Headache [None]
  - Hyponatraemia [None]
  - Vomiting [None]
  - Metabolic acidosis [None]

NARRATIVE: CASE EVENT DATE: 20140228
